FAERS Safety Report 15569613 (Version 2)
Quarter: 2018Q4

REPORT INFORMATION
  Report Type: Spontaneous
  Country: BE (occurrence: BE)
  Receive Date: 20181031
  Receipt Date: 20181226
  Transmission Date: 20190205
  Serious: Yes (Other)
  Sender: FDA-Public Use
  Company Number: BE-AMGEN-BELSP2018152010

PATIENT
  Age: 41 Year
  Sex: Female

DRUGS (1)
  1. ENBREL [Suspect]
     Active Substance: ETANERCEPT
     Indication: PRODUCT USED FOR UNKNOWN INDICATION
     Dosage: UNK
     Route: 058

REACTIONS (6)
  - Arthropod bite [Unknown]
  - Immune system disorder [Unknown]
  - Limb injury [Unknown]
  - Infected bite [Unknown]
  - Wound infection [Unknown]
  - Inflammation of wound [Unknown]

NARRATIVE: CASE EVENT DATE: 201810
